FAERS Safety Report 8093001-6 (Version None)
Quarter: 2012Q1

REPORT INFORMATION
  Report Type: 
  Country: None (occurrence: None)
  Receive Date: 20120128
  Receipt Date: 20110923
  Transmission Date: 20120608
  Serious: No
  Sender: FDA-Public Use
  Company Number: US-ABBOTT-08P-163-0456949-00

PATIENT
  Sex: Female
  Weight: 77.18 kg

DRUGS (2)
  1. HUMIRA [Suspect]
     Indication: CROHN'S DISEASE
     Dosage: LOADING DOSE
     Route: 058
     Dates: start: 20080527, end: 20080527
  2. HUMIRA [Suspect]
     Route: 058
     Dates: start: 20080610

REACTIONS (4)
  - NEEDLE TRACK MARKS [None]
  - INJECTION SITE EXTRAVASATION [None]
  - INJECTION SITE HAEMATOMA [None]
  - INCORRECT DOSE ADMINISTERED [None]
